FAERS Safety Report 18378996 (Version 1)
Quarter: 2020Q4

REPORT INFORMATION
  Report Type: Spontaneous
  Country: AU (occurrence: AU)
  Receive Date: 20201013
  Receipt Date: 20201013
  Transmission Date: 20210114
  Serious: Yes (Other)
  Sender: FDA-Public Use
  Company Number: AU-ROCHE-2692293

PATIENT
  Age: 69 Year
  Sex: Female
  Weight: 65 kg

DRUGS (2)
  1. LUCENTIS [Suspect]
     Active Substance: RANIBIZUMAB
     Indication: NEOVASCULAR AGE-RELATED MACULAR DEGENERATION
     Dosage: UNK (IN ONE EYE 5 WEEKS AGO)
     Route: 065
     Dates: start: 20200724, end: 20200724
  2. AMLODIPINE [Concomitant]
     Active Substance: AMLODIPINE BESYLATE
     Indication: BLOOD PRESSURE MEASUREMENT
     Dosage: 5 MG (AMLODIPINE 5 MG SINCE ACCIDENT)
     Route: 065

REACTIONS (33)
  - Syncope [Unknown]
  - Vitreous floaters [Unknown]
  - Pallor [Recovering/Resolving]
  - Eyelid pain [Recovering/Resolving]
  - Weight decreased [Unknown]
  - Polyuria [Unknown]
  - Lip pain [Unknown]
  - Thirst [Unknown]
  - Asthenia [Recovering/Resolving]
  - Pharyngeal swelling [Unknown]
  - Sensation of foreign body [Unknown]
  - Eyelids pruritus [Recovering/Resolving]
  - Nausea [Unknown]
  - Visual impairment [Unknown]
  - Sinus pain [Unknown]
  - Pruritus [Unknown]
  - Photophobia [Unknown]
  - Myalgia [Recovering/Resolving]
  - Initial insomnia [Unknown]
  - Loss of consciousness [Unknown]
  - Gastrooesophageal reflux disease [Recovering/Resolving]
  - Illness [Recovering/Resolving]
  - Arthralgia [Recovering/Resolving]
  - Fatigue [Recovering/Resolving]
  - Chills [Unknown]
  - Dehydration [Unknown]
  - Eye pruritus [Unknown]
  - Rhinitis [Unknown]
  - Swelling of eyelid [Recovering/Resolving]
  - Constipation [Recovered/Resolved]
  - Dry mouth [Unknown]
  - Eye irritation [Recovering/Resolving]
  - Dizziness [Unknown]

NARRATIVE: CASE EVENT DATE: 20200726
